FAERS Safety Report 8262325-1 (Version None)
Quarter: 2012Q1

REPORT INFORMATION
  Report Type: 
  Country: None (occurrence: None)
  Receive Date: 20120327
  Receipt Date: 20100226
  Transmission Date: 20120608
  Serious: Yes (Other)
  Sender: FDA-Public Use
  Company Number: PHEH2010US02743

PATIENT
  Sex: Male

DRUGS (4)
  1. ZYMAR [Concomitant]
  2. PRED FORTE [Concomitant]
  3. ACULABS [Concomitant]
  4. GLEEVEC [Suspect]
     Dosage: 400 MG, QD, ORAL
     Route: 048
     Dates: start: 20091102

REACTIONS (1)
  - CATARACT [None]
